FAERS Safety Report 4808583-4 (Version None)
Quarter: 2005Q4

REPORT INFORMATION
  Report Type: 
  Country: None (occurrence: None)
  Receive Date: 20051025
  Receipt Date: 20051013
  Transmission Date: 20060501
  Serious: Yes (Hospitalization)
  Sender: FDA-Public Use
  Company Number: FR-GLAXOSMITHKLINE-B0397253A

PATIENT
  Age: 49 Year
  Sex: Female

DRUGS (3)
  1. DEROXAT [Suspect]
     Route: 048
  2. MEPRONIZINE [Concomitant]
     Route: 048
  3. ESBERIVEN [Concomitant]

REACTIONS (4)
  - CONFUSIONAL STATE [None]
  - EPILEPSY [None]
  - HEADACHE [None]
  - LOSS OF CONSCIOUSNESS [None]
